FAERS Safety Report 5063159-1 (Version None)
Quarter: 2006Q3

REPORT INFORMATION
  Report Type: 
  Country: None (occurrence: None)
  Receive Date: 20060724
  Receipt Date: 20060711
  Transmission Date: 20061208
  Serious: Yes (Hospitalization, Other)
  Sender: FDA-Public Use
  Company Number: 2006087054

PATIENT
  Sex: Female

DRUGS (2)
  1. BEXTRA [Suspect]
     Indication: DRUG USE FOR UNKNOWN INDICATION
     Dates: start: 20021227, end: 20031106
  2. CELEBREX [Suspect]
     Indication: DRUG USE FOR UNKNOWN INDICATION
     Dates: start: 20030101, end: 20031106

REACTIONS (1)
  - CEREBROVASCULAR ACCIDENT [None]
